FAERS Safety Report 10194909 (Version 2)
Quarter: 2014Q2

REPORT INFORMATION
  Report Type: Spontaneous
  Country: US (occurrence: US)
  Receive Date: 20140526
  Receipt Date: 20140609
  Transmission Date: 20141212
  Serious: No
  Sender: FDA-Public Use
  Company Number: US-PFIZER INC-2014141041

PATIENT
  Sex: Female

DRUGS (5)
  1. ZOLOFT [Suspect]
     Dosage: UNK
  2. CRESTOR [Suspect]
     Dosage: UNK
  3. PAXIL [Suspect]
     Dosage: UNK
  4. VICODIN [Suspect]
     Dosage: UNK
  5. IODINE [Suspect]
     Dosage: UNK

REACTIONS (1)
  - Drug hypersensitivity [Unknown]
